FAERS Safety Report 8020079-8 (Version None)
Quarter: 2012Q1

REPORT INFORMATION
  Report Type: 
  Country: None (occurrence: None)
  Receive Date: 20120103
  Receipt Date: 20111226
  Transmission Date: 20120608
  Serious: Yes (Other)
  Sender: FDA-Public Use
  Company Number: US-TEVA-315350USA

PATIENT
  Age: 55 Year
  Sex: Male

DRUGS (1)
  1. GEMFIBROZIL [Suspect]
     Indication: HYPERTRIGLYCERIDAEMIA
     Dosage: 1200 MILLIGRAM;

REACTIONS (5)
  - HEPATITIS CHOLESTATIC [None]
  - JAUNDICE [None]
  - FATIGUE [None]
  - ABDOMINAL PAIN [None]
  - PRURITUS [None]
